FAERS Safety Report 7426015 (Version 3)
Quarter: 2015Q4

REPORT INFORMATION
  Report Type: Spontaneous
  Country: US (occurrence: US)
  Receive Date: 20100621
  Receipt Date: 20151130
  Transmission Date: 20160305
  Serious: Yes (Hospitalization)
  Sender: FDA-Public Use
  Company Number: US-BAYER-201025000NA

PATIENT
  Age: 37 Year
  Sex: Female
  Weight: 104 kg

DRUGS (5)
  1. YASMIN [Suspect]
     Active Substance: DROSPIRENONE\ETHINYL ESTRADIOL
     Indication: PRODUCT USED FOR UNKNOWN INDICATION
     Dosage: UNK
     Route: 048
     Dates: start: 200802, end: 200804
  2. MUCINEX [Concomitant]
     Active Substance: GUAIFENESIN
  3. MISOPROSTOL. [Concomitant]
     Active Substance: MISOPROSTOL
  4. YAZ [Suspect]
     Active Substance: DROSPIRENONE\ETHINYL ESTRADIOL
     Indication: PRODUCT USED FOR UNKNOWN INDICATION
     Dosage: UNK
     Route: 048
     Dates: start: 200802, end: 200804
  5. DICLOFENAC [DICLOFENAC] [Concomitant]
     Active Substance: DICLOFENAC SODIUM

REACTIONS (4)
  - Pain [Unknown]
  - Deep vein thrombosis [Unknown]
  - Emotional distress [Unknown]
  - Peripheral artery thrombosis [Recovered/Resolved]

NARRATIVE: CASE EVENT DATE: 200804
